FAERS Safety Report 14665783 (Version 1)
Quarter: 2018Q1

REPORT INFORMATION
  Report Type: Report from Study
  Country: US (occurrence: US)
  Receive Date: 20180321
  Receipt Date: 20180321
  Transmission Date: 20180509
  Serious: Yes (Hospitalization)
  Sender: FDA-Public Use
  Company Number: US-TAKEDA-2018TUS006893

PATIENT
  Age: 60 Year
  Sex: Male

DRUGS (1)
  1. PONATINIB [Suspect]
     Active Substance: PONATINIB
     Indication: ACUTE MYELOID LEUKAEMIA RECURRENT
     Dosage: 30 MG, QD
     Route: 048
     Dates: start: 20170322

REACTIONS (4)
  - Off label use [Unknown]
  - Blister [Recovered/Resolved]
  - Pneumonia [Recovered/Resolved]
  - Rhinovirus infection [Recovered/Resolved]

NARRATIVE: CASE EVENT DATE: 20170322
